FAERS Safety Report 15356560 (Version 1)
Quarter: 2018Q3

REPORT INFORMATION
  Report Type: Spontaneous
  Country: US (occurrence: US)
  Receive Date: 20180830
  Receipt Date: 20180830
  Transmission Date: 20181010
  Serious: Yes (Other)
  Sender: FDA-Public Use
  Company Number: None

PATIENT

DRUGS (2)
  1. METOPROLOL. [Concomitant]
     Active Substance: METOPROLOL
  2. LEVOFLOXACIN 500 [Suspect]
     Active Substance: LEVOFLOXACIN
     Indication: MEDICAL DEVICE SITE INFECTION
     Dosage: ?          QUANTITY:1 DF DOSAGE FORM;?
     Route: 048
     Dates: start: 20180716, end: 20180720

REACTIONS (6)
  - Musculoskeletal disorder [None]
  - Loss of personal independence in daily activities [None]
  - Heart rate increased [None]
  - Peripheral swelling [None]
  - Pain [None]
  - Palpitations [None]
